FAERS Safety Report 14496809 (Version 1)
Quarter: 2018Q1

REPORT INFORMATION
  Report Type: Spontaneous
  Country: US (occurrence: US)
  Receive Date: 20180207
  Receipt Date: 20180207
  Transmission Date: 20180509
  Serious: No
  Sender: FDA-Public Use
  Company Number: US-PFIZER INC-2018052217

PATIENT
  Sex: Female

DRUGS (2)
  1. ADVIL PM [Suspect]
     Active Substance: DIPHENHYDRAMINE CITRATE\IBUPROFEN
     Indication: HERPES ZOSTER
     Dosage: FOUR 200MG PILLS
  2. ADVIL [Suspect]
     Active Substance: IBUPROFEN
     Indication: HERPES ZOSTER
     Dosage: UNK

REACTIONS (6)
  - Accidental overdose [Unknown]
  - Dry mouth [Unknown]
  - Fatigue [Unknown]
  - Dizziness [Unknown]
  - Somnolence [Unknown]
  - Wrong drug administered [Unknown]

NARRATIVE: CASE EVENT DATE: 20180131
